FAERS Safety Report 8814161 (Version 1)
Quarter: 2012Q4

REPORT INFORMATION
  Report Type: Spontaneous
  Country: JP (occurrence: None)
  Receive Date: 20120925
  Receipt Date: 20120925
  Transmission Date: 20130627
  Serious: Yes (Death)
  Sender: FDA-Public Use
  Company Number: JP-2012-16316

PATIENT
  Age: 69 Year
  Sex: Male
  Weight: 48 kg

DRUGS (20)
  1. SAMSCA (TOLVAPTAN) TABLET [Suspect]
     Indication: FLUID RETENTION
     Dosage: 7.5 mg milligram(s), qam, oral
     Route: 048
     Dates: start: 20120821, end: 20120822
  2. AMINO ACIDS [Concomitant]
  3. ARTIST [Concomitant]
  4. ANCARON (AMIODARONE HYDROCHLORIDE) [Concomitant]
  5. SELARA (EPLERENONE) [Concomitant]
  6. LUPRAC (TORASEMIDE) [Concomitant]
  7. NIKORANMART (NICORANDIL) [Concomitant]
  8. HALFDIGOXIN (DIGOXIN) [Concomitant]
  9. CRESTOR (ROSUVASTATIN CALCIUM) [Concomitant]
  10. JANUVIA (SITAGLIPTIN PHOSPHATE) [Concomitant]
  11. NEXIUM (ESOMEPRAZOLE MAGNESIUM) [Concomitant]
  12. FEROTYM (FERROUS SODIUM CITRATE) [Concomitant]
  13. PRAZAXA (DABIGATRAN ETEXILATE METHANESULFONATE) [Concomitant]
  14. BAYASPIRIN (ACETYLSALICYLIC ACID) [Concomitant]
  15. MYOCOR (GLYCERYL TRINITRATE) [Concomitant]
  16. GENINAX (GARENOXACIN MESILATE) [Concomitant]
  17. FEBURIC (FEBUXOSTAT) [Concomitant]
  18. AZUNOL (GUAIAZULENE) [Concomitant]
  19. FESIN (SACCHARATED IRON OXIDE) [Concomitant]
  20. PRIMPERAN (METOCLOPRAMIDE HYDROCHLORIDE) [Concomitant]

REACTIONS (3)
  - Blood pressure decreased [None]
  - Pulmonary embolism [None]
  - Death [None]
